FAERS Safety Report 9633680 (Version 3)
Quarter: 2014Q1

REPORT INFORMATION
  Report Type: Spontaneous
  Country: DE (occurrence: DE)
  Receive Date: 20131021
  Receipt Date: 20140107
  Transmission Date: 20141002
  Serious: Yes (Hospitalization)
  Sender: FDA-Public Use
  Company Number: DE-SHIRE-ALL1-2013-06976

PATIENT
  Age: 7 Year
  Sex: Male
  Weight: 20.8 kg

DRUGS (1)
  1. ELVANSE [Suspect]
     Indication: ATTENTION DEFICIT/HYPERACTIVITY DISORDER
     Dosage: 30 MG, 1X/DAY:QD
     Route: 065
     Dates: start: 20131008, end: 20131008

REACTIONS (9)
  - Unresponsive to stimuli [Recovered/Resolved]
  - Confusional state [Recovered/Resolved]
  - Automatism [Recovered/Resolved]
  - Hyperventilation [Recovered/Resolved]
  - Akathisia [Recovered/Resolved]
  - Tachycardia [Recovered/Resolved]
  - Logorrhoea [Recovered/Resolved]
  - Anxiety [Recovered/Resolved]
  - Mydriasis [Recovered/Resolved]
